FAERS Safety Report 6648309-5 (Version None)
Quarter: 2010Q1

REPORT INFORMATION
  Report Type: 
  Country: None (occurrence: None)
  Receive Date: 20100324
  Receipt Date: 20100323
  Transmission Date: 20100710
  Serious: Yes (Hospitalization)
  Sender: FDA-Public Use
  Company Number: US-ROCHE-688333

PATIENT
  Age: 54 Year

DRUGS (6)
  1. TRASTUZUMAB [Suspect]
     Dosage: MOST RECENT DOSE: 11 JUNE 2009 THA CYCLE 2
     Route: 065
  2. PEGFILGRASTIM [Suspect]
     Indication: DRUG USE FOR UNKNOWN INDICATION
     Dosage: THE LAST DATE GIVEN: 06 JUNE 2009, FORM: PRE-FILLED SYRINGE
     Route: 065
  3. BEVACIZUMAB [Suspect]
     Dosage: MOST RECENT DOSE: 05 JUNE 2009 THA CYCLE 2
     Route: 065
  4. DOCETAXEL [Suspect]
     Dosage: MOST RECENT DOSE: 05 JUNE 2009 THA CYCLE 2
     Route: 065
  5. EPIRUBICIN [Suspect]
     Route: 065
  6. CYCLOPHOSPHAMIDE [Suspect]
     Route: 065

REACTIONS (1)
  - MYOSITIS [None]
